FAERS Safety Report 9475551 (Version 2)
Quarter: 2013Q4

REPORT INFORMATION
  Report Type: Spontaneous
  Country: FR (occurrence: FR)
  Receive Date: 20130826
  Receipt Date: 20131212
  Transmission Date: 20140711
  Serious: Yes (Other)
  Sender: FDA-Public Use
  Company Number: FR-ASTRAZENECA-2013SE64581

PATIENT
  Age: 50 Year
  Sex: Male

DRUGS (8)
  1. ENTOCORT [Suspect]
     Indication: VIRAL HEPATITIS CARRIER
     Route: 048
  2. ENTOCORT [Suspect]
     Indication: VIRAL HEPATITIS CARRIER
     Route: 048
     Dates: start: 20120313, end: 201303
  3. ENTOCORT [Suspect]
     Indication: VIRAL HEPATITIS CARRIER
     Route: 048
     Dates: start: 20120313, end: 201303
  4. PEGASYS [Suspect]
     Indication: VIRAL HEPATITIS CARRIER
     Route: 058
  5. PEGASYS [Suspect]
     Indication: VIRAL HEPATITIS CARRIER
     Route: 058
     Dates: start: 20120409, end: 201303
  6. RIBAVIRINE [Suspect]
     Indication: VIRAL HEPATITIS CARRIER
     Route: 048
  7. RIBAVIRINE [Suspect]
     Indication: VIRAL HEPATITIS CARRIER
     Route: 048
     Dates: start: 20120409, end: 201303
  8. INCIVO [Suspect]
     Indication: VIRAL HEPATITIS CARRIER
     Route: 048
     Dates: start: 20120409, end: 201303

REACTIONS (2)
  - Diabetes mellitus [Recovered/Resolved]
  - Off label use [Unknown]
